FAERS Safety Report 10418184 (Version 2)
Quarter: 2015Q2

REPORT INFORMATION
  Report Type: Report from Study
  Country: TR (occurrence: TR)
  Receive Date: 20140829
  Receipt Date: 20150410
  Transmission Date: 20150821
  Serious: Yes (Hospitalization, Other)
  Sender: FDA-Public Use
  Company Number: TR-NOVOPROD-420110

PATIENT
  Age: 27 Year
  Sex: Female
  Weight: 85 kg

DRUGS (3)
  1. NOVORAPID [Suspect]
     Active Substance: INSULIN ASPART
     Indication: TYPE 1 DIABETES MELLITUS
     Dosage: 48 U, QD
     Route: 058
     Dates: start: 2012
  2. LANTUS [Concomitant]
     Active Substance: INSULIN GLARGINE
     Dosage: 22 U, QD
     Route: 058
     Dates: start: 2012, end: 20140813
  3. HUMULIN N [Concomitant]
     Active Substance: INSULIN HUMAN
     Dosage: 22 U, QD
     Route: 058
     Dates: start: 20140813, end: 20140814

REACTIONS (2)
  - Exposure during pregnancy [Recovered/Resolved]
  - Abortion induced [Recovered/Resolved]

NARRATIVE: CASE EVENT DATE: 20140616
